FAERS Safety Report 16883177 (Version 3)
Quarter: 2019Q4

REPORT INFORMATION
  Report Type: Spontaneous
  Country: US (occurrence: US)
  Receive Date: 20191004
  Receipt Date: 20191209
  Transmission Date: 20200122
  Serious: No
  Sender: FDA-Public Use
  Company Number: US-SA-2019SA269490

PATIENT
  Age: 23 Year
  Sex: Female
  Weight: 102 kg

DRUGS (2)
  1. LEMTRADA [Suspect]
     Active Substance: ALEMTUZUMAB
     Dosage: UNK UNK, QD
     Route: 041
     Dates: start: 20180514, end: 20180518
  2. LEMTRADA [Suspect]
     Active Substance: ALEMTUZUMAB
     Indication: MULTIPLE SCLEROSIS
     Dosage: 12 MG, QD
     Route: 041
     Dates: start: 20190513, end: 20190515

REACTIONS (4)
  - Arthralgia [Unknown]
  - Lymphoedema [Unknown]
  - Obesity [Unknown]
  - Tendonitis [Unknown]

NARRATIVE: CASE EVENT DATE: 2019
